FAERS Safety Report 17277283 (Version 1)
Quarter: 2020Q1

REPORT INFORMATION
  Report Type: Spontaneous
  Country: US (occurrence: US)
  Receive Date: 20200116
  Receipt Date: 20200116
  Transmission Date: 20200409
  Serious: Yes (Other)
  Sender: FDA-Public Use
  Company Number: None

PATIENT
  Age: 39 Year
  Sex: Female

DRUGS (1)
  1. CROMOLYN - 4% [Suspect]
     Active Substance: CROMOLYN SODIUM

REACTIONS (3)
  - Therapy non-responder [None]
  - Eye irritation [None]
  - Eye discharge [None]

NARRATIVE: CASE EVENT DATE: 20200116
